FAERS Safety Report 4624315-7 (Version None)
Quarter: 2005Q1

REPORT INFORMATION
  Report Type: 
  Country: None (occurrence: None)
  Receive Date: 20050331
  Receipt Date: 20050324
  Transmission Date: 20050727
  Serious: Yes (Other)
  Sender: FDA-Public Use
  Company Number: US-ABBOTT-05P-163-0295077-00

PATIENT
  Sex: Male
  Weight: 103.63 kg

DRUGS (4)
  1. HUMIRA [Suspect]
     Indication: RHEUMATOID ARTHRITIS
     Route: 058
     Dates: start: 20050215, end: 20050315
  2. OXYCODE/APAP [Concomitant]
     Indication: RHEUMATOID ARTHRITIS
     Dosage: 1 TABLET (5-325MG) DOSE, 4 TABLETS DAILY
     Route: 048
  3. PREDNISONE [Concomitant]
     Indication: RHEUMATOID ARTHRITIS
     Route: 048
     Dates: start: 19920101
  4. OXYGEN [Concomitant]
     Indication: CHRONIC OBSTRUCTIVE PULMONARY DISEASE
     Route: 055

REACTIONS (7)
  - BALANCE DISORDER [None]
  - FALL [None]
  - HEADACHE [None]
  - INJECTION SITE ULCER [None]
  - INTERVERTEBRAL DISC PROTRUSION [None]
  - OEDEMA [None]
  - OSTEOPOROSIS [None]
